FAERS Safety Report 7213171 (Version 6)
Quarter: 2013Q1

REPORT INFORMATION
  Report Type: Spontaneous
  Country: JP (occurrence: JP)
  Receive Date: 20091211
  Receipt Date: 20130308
  Transmission Date: 20140127
  Serious: Yes (Death, Other)
  Sender: FDA-Public Use
  Company Number: PHHY2009JP54403

PATIENT
  Age: 85 Year
  Sex: Female

DRUGS (8)
  1. METOPIRONE [Suspect]
     Indication: CUSHING^S SYNDROME
     Dosage: 500 MG, PER DAY
     Route: 048
     Dates: start: 20090626
  2. SULFAMETHOXAZOLE, TRIMETHOPRIM [Concomitant]
     Indication: INFECTION PROPHYLAXIS
     Dosage: 4 DF, UNK
     Route: 048
  3. SULFAMETHOXAZOLE, TRIMETHOPRIM [Concomitant]
     Dosage: UNK UKN, UNK
     Dates: start: 20090626
  4. SULFAMETHOXAZOLE, TRIMETHOPRIM [Concomitant]
     Dosage: UNK (4 TABLETS/DAY)
  5. PREDNISOLONE [Concomitant]
     Dosage: 80 MG PER DAY
  6. PIPERACILLIN [Concomitant]
     Dosage: 2.25 GM 4 TIMES PER DAY
  7. ARBEKACIN [Concomitant]
     Dosage: 200 MG ONE TIME PER DAY
  8. GANCICLOVIR [Concomitant]
     Dosage: 125 MG PER DAY

REACTIONS (8)
  - Respiratory failure [Fatal]
  - Respiratory distress [Fatal]
  - Diffuse alveolar damage [Fatal]
  - Pneumocystis jirovecii pneumonia [Fatal]
  - Interstitial lung disease [Fatal]
  - Depressed level of consciousness [Unknown]
  - Cytomegalovirus infection [Not Recovered/Not Resolved]
  - Cryptococcosis [Unknown]
